FAERS Safety Report 12859856 (Version 1)
Quarter: 2016Q4

REPORT INFORMATION
  Report Type: Spontaneous
  Country: US (occurrence: US)
  Receive Date: 20161018
  Receipt Date: 20161018
  Transmission Date: 20170207
  Serious: Yes (Hospitalization)
  Sender: FDA-Public Use
  Company Number: None

PATIENT
  Age: 66 Year
  Sex: Male
  Weight: 86.9 kg

DRUGS (1)
  1. CYTARABINE. [Suspect]
     Active Substance: CYTARABINE
     Dates: end: 20160722

REACTIONS (5)
  - Febrile neutropenia [None]
  - Pseudomonas test positive [None]
  - Loss of consciousness [None]
  - Dizziness [None]
  - Infection [None]

NARRATIVE: CASE EVENT DATE: 20160801
